FAERS Safety Report 24876550 (Version 1)
Quarter: 2025Q1

REPORT INFORMATION
  Report Type: Spontaneous
  Country: US (occurrence: US)
  Receive Date: 20250123
  Receipt Date: 20250123
  Transmission Date: 20250409
  Serious: Yes (Hospitalization)
  Sender: AMNEAL
  Company Number: US-AMNEAL PHARMACEUTICALS-2025-AMRX-00114

PATIENT
  Age: 9 Year
  Sex: Male

DRUGS (2)
  1. VIGABATRIN [Suspect]
     Active Substance: VIGABATRIN
     Indication: Product used for unknown indication
     Route: 065
  2. ACETAMINOPHEN [Concomitant]
     Active Substance: ACETAMINOPHEN
     Indication: Product used for unknown indication
     Route: 065

REACTIONS (3)
  - Metabolic acidosis [Recovered/Resolved]
  - Shock [Unknown]
  - Pancreatitis acute [Recovered/Resolved]
